FAERS Safety Report 12057806 (Version 3)
Quarter: 2016Q1

REPORT INFORMATION
  Report Type: Spontaneous
  Country: JP (occurrence: JP)
  Receive Date: 20160209
  Receipt Date: 20160223
  Transmission Date: 20160526
  Serious: Yes (Life-Threatening, Disabling)
  Sender: FDA-Public Use
  Company Number: JP-B.I. PHARMACEUTICALS,INC./RIDGEFIELD-2016-BI-05757NB

PATIENT
  Age: 64 Year
  Sex: Male
  Weight: 67.5 kg

DRUGS (2)
  1. RIMATIL [Suspect]
     Active Substance: BUCILLAMINE
     Indication: ARTHRALGIA
     Dosage: 100 MG
     Route: 048
     Dates: start: 201507, end: 201512
  2. TRAZENTA [Suspect]
     Active Substance: LINAGLIPTIN
     Indication: TYPE 1 DIABETES MELLITUS
     Dosage: 5 MG
     Route: 048
     Dates: start: 201410, end: 201502

REACTIONS (3)
  - Renal impairment [Unknown]
  - Impaired insulin secretion [Recovered/Resolved]
  - Arthralgia [Not Recovered/Not Resolved]

NARRATIVE: CASE EVENT DATE: 201512
